FAERS Safety Report 7056625-0 (Version None)
Quarter: 2010Q4

REPORT INFORMATION
  Report Type: 
  Country: None (occurrence: None)
  Receive Date: 20101018
  Receipt Date: 20101001
  Transmission Date: 20110411
  Serious: Yes (Death, Other)
  Sender: FDA-Public Use
  Company Number: 2010AP001974

PATIENT
  Age: 20 Year
  Sex: Female

DRUGS (5)
  1. CITALOPRAM HYDROBROMIDE [Suspect]
  2. OXYBATE SODIUM (OXYBATE SODIUM) [Suspect]
  3. SALICYCLIC ACID (SALICYCLIC ACID) [Suspect]
  4. AMFETAMINE (AMFETAMINE) [Suspect]
  5. COCAINE (COCAINE) [Suspect]

REACTIONS (2)
  - DRUG TOXICITY [None]
  - OVERDOSE [None]
